FAERS Safety Report 4821545-6 (Version None)
Quarter: 2005Q4

REPORT INFORMATION
  Report Type: 
  Country: None (occurrence: None)
  Receive Date: 20051103
  Receipt Date: 20051103
  Transmission Date: 20060501
  Serious: Yes (Hospitalization)
  Sender: FDA-Public Use
  Company Number: None

PATIENT
  Sex: Female
  Weight: 49.4421 kg

DRUGS (12)
  1. REVLIMID [Suspect]
     Indication: MULTIPLE MYELOMA
     Dosage: 25 MG , PO DAILY
     Route: 048
     Dates: start: 20051025
  2. DEXAMETHASONE TAB [Suspect]
     Indication: MULTIPLE MYELOMA
     Dosage: 40 MG PO DAILY
     Route: 048
     Dates: start: 20051025
  3. NEURONTIN [Concomitant]
  4. ATIVAN [Concomitant]
  5. MYCELEX [Concomitant]
  6. PREVACID [Concomitant]
  7. MEGACE [Concomitant]
  8. PROCRIT [Concomitant]
  9. OXYCODONE [Concomitant]
  10. CYMBALTA [Concomitant]
  11. COUMADIN [Concomitant]
  12. BACTRIM DS [Concomitant]

REACTIONS (6)
  - ABDOMINAL PAIN [None]
  - DEHYDRATION [None]
  - FAILURE TO THRIVE [None]
  - HYPONATRAEMIA [None]
  - ORAL INTAKE REDUCED [None]
  - WEIGHT DECREASED [None]
